FAERS Safety Report 4666276-0 (Version None)
Quarter: 2005Q2

REPORT INFORMATION
  Report Type: 
  Country: None (occurrence: None)
  Receive Date: 20050518
  Receipt Date: 20040623
  Transmission Date: 20051028
  Serious: Yes (Life-Threatening, Hospitalization)
  Sender: FDA-Public Use
  Company Number: 2004-0007194

PATIENT
  Age: 51 Year
  Sex: Male
  Weight: 59 kg

DRUGS (4)
  1. VIREAD [Suspect]
     Indication: HIV INFECTION
     Dosage: 300 MG, 1 IN 1 D, ORAL
     Route: 048
     Dates: start: 20040505, end: 20040501
  2. EMTRIVA [Suspect]
     Indication: HIV INFECTION
     Dates: start: 20040505
  3. ATAZANAVIR             (ATAZANAVIR) [Concomitant]
  4. NOVIR             (RITONAVIR) [Concomitant]

REACTIONS (5)
  - DEHYDRATION [None]
  - FANCONI SYNDROME [None]
  - FATIGUE [None]
  - GENERAL PHYSICAL CONDITION ABNORMAL [None]
  - HYPOKALAEMIA [None]
